FAERS Safety Report 4498244-6 (Version None)
Quarter: 2004Q3

REPORT INFORMATION
  Report Type: 
  Country: None (occurrence: None)
  Receive Date: 20040927
  Receipt Date: 20040608
  Transmission Date: 20050211
  Serious: No
  Sender: FDA-Public Use
  Company Number: USA040669696

PATIENT
  Age: 34 Year
  Sex: Female

DRUGS (3)
  1. STRATTERA [Suspect]
     Indication: MEMORY IMPAIRMENT
     Dosage: 40 MG DAY
     Dates: start: 20040604
  2. LEXAPRO [Concomitant]
  3. KLONOPIN [Concomitant]

REACTIONS (6)
  - FIBROMYALGIA [None]
  - NERVOUSNESS [None]
  - PARAESTHESIA [None]
  - PSYCHOMOTOR HYPERACTIVITY [None]
  - RHINORRHOEA [None]
  - THROAT IRRITATION [None]
